FAERS Safety Report 19140854 (Version 2)
Quarter: 2021Q3

REPORT INFORMATION
  Report Type: Report from Study
  Country: US (occurrence: US)
  Receive Date: 20210415
  Receipt Date: 20210809
  Transmission Date: 20211014
  Serious: Yes (Hospitalization)
  Sender: FDA-Public Use
  Company Number: NVSC2021US077645

PATIENT

DRUGS (1)
  1. ENTRESTO [Suspect]
     Active Substance: SACUBITRIL\VALSARTAN
     Indication: FOETAL EXPOSURE DURING PREGNANCY
     Dosage: 50 MG, BID (24/26 MG)
     Route: 064
     Dates: start: 202003, end: 202005

REACTIONS (2)
  - Foetal exposure during pregnancy [Unknown]
  - Cardiac disorder [Recovered/Resolved]
